FAERS Safety Report 15143093 (Version 2)
Quarter: 2018Q3

REPORT INFORMATION
  Report Type: Spontaneous
  Country: JP (occurrence: JP)
  Receive Date: 20180713
  Receipt Date: 20180830
  Transmission Date: 20181010
  Serious: Yes (Other)
  Sender: FDA-Public Use
  Company Number: JP-PFIZER INC-2018276213

PATIENT

DRUGS (1)
  1. ZITHROMAC 250MG [Suspect]
     Active Substance: AZITHROMYCIN DIHYDRATE
     Indication: DENTAL CARE
     Dosage: 500 MG, 1X/DAY

REACTIONS (4)
  - Pseudomembranous colitis [Unknown]
  - Haemorrhage [Recovered/Resolved]
  - Enterocolitis haemorrhagic [Unknown]
  - Diarrhoea [Recovered/Resolved]
